FAERS Safety Report 8935735 (Version 1)
Quarter: 2012Q4

REPORT INFORMATION
  Report Type: 
  Country: BR (occurrence: BR)
  Receive Date: 20121130
  Receipt Date: 20121130
  Transmission Date: 20130627
  Serious: Yes (Death, Other)
  Sender: FDA-Public Use
  Company Number: BR-COVIDIEN/TYCO HEALTHCARE/MALLINCKRODT-T201204158

PATIENT
  Age: 62 Year
  Sex: Female
  Weight: 75 kg

DRUGS (9)
  1. OPTIRAY [Suspect]
     Indication: COMPUTERISED TOMOGRAM
     Dosage: 30 ml
     Route: 048
     Dates: start: 20121114, end: 20121114
  2. OPTIRAY [Suspect]
     Dosage: 100 ml
     Route: 042
     Dates: start: 20121114, end: 20121114
  3. HEPARIN NA [Concomitant]
     Dosage: 5000 UI, 1 ampoule Q 8hrs
     Route: 042
     Dates: start: 20121106, end: 20121114
  4. RANITIDINE [Concomitant]
     Dosage: 150 mg, 1 tab q 12 hrs
     Route: 048
     Dates: start: 20121106, end: 20121114
  5. LOSARTAN [Concomitant]
     Dosage: 50 mg, 1 tab q 12 hrs
     Route: 048
     Dates: start: 20121106, end: 20121114
  6. PROPRANOLOL [Concomitant]
     Dosage: 40 mg, 1 tab q 12 hrs
     Route: 048
     Dates: start: 20121106, end: 20121114
  7. DIPYRONE [Concomitant]
     Dosage: 1 ampoule q 6 hrs
     Route: 042
     Dates: start: 20121106, end: 20121114
  8. PLASIL [Concomitant]
     Dosage: 1 ampoule q 8 hrs
     Route: 042
     Dates: start: 20121106, end: 20121106
  9. CAPTOPRIL [Concomitant]
     Dosage: 25 mg, 1 tab UNK
     Route: 048
     Dates: start: 20121106, end: 20121106

REACTIONS (8)
  - Cardiac arrest [Fatal]
  - Respiratory arrest [Unknown]
  - Pupil fixed [Unknown]
  - Stupor [Unknown]
  - Laryngeal oedema [Unknown]
  - Hypotension [Unknown]
  - Bronchospasm [Unknown]
  - Confusional state [Unknown]
